FAERS Safety Report 12311261 (Version 1)
Quarter: 2016Q2

REPORT INFORMATION
  Report Type: Spontaneous
  Country: US (occurrence: US)
  Receive Date: 20160427
  Receipt Date: 20160427
  Transmission Date: 20160815
  Serious: Yes (Other)
  Sender: FDA-Public Use
  Company Number: US-PFIZER INC-2016228234

PATIENT
  Age: 55 Year
  Sex: Female

DRUGS (58)
  1. LYRICA [Suspect]
     Active Substance: PREGABALIN
     Dosage: 75 MG, 2X/DAY
     Route: 048
     Dates: end: 20131101
  2. LYRICA [Suspect]
     Active Substance: PREGABALIN
     Dosage: 100 MG, 3X/DAY
     Route: 048
     Dates: end: 20151116
  3. ZOLOFT [Suspect]
     Active Substance: SERTRALINE HYDROCHLORIDE
     Dosage: 50 MG, 1X/DAY
     Route: 048
     Dates: start: 20130117
  4. COMPAZINE [Concomitant]
     Active Substance: PROCHLORPERAZINE MALEATE
     Indication: NAUSEA
     Dosage: 10 MG, AS NEEDED, (EVERY 6 HRS)
     Route: 048
     Dates: start: 20150605
  5. LEVAQUIN [Concomitant]
     Active Substance: LEVOFLOXACIN
     Dosage: 500 MG, DAILY
     Route: 048
     Dates: start: 20151224
  6. ZANTAC [Concomitant]
     Active Substance: RANITIDINE HYDROCHLORIDE
     Dosage: 150 MG, 1X/DAY
     Route: 048
     Dates: start: 20150611
  7. ZANTAC [Concomitant]
     Active Substance: RANITIDINE HYDROCHLORIDE
     Dosage: 150 MG, 1X/DAY
     Route: 048
     Dates: start: 20150813
  8. ZANTAC [Concomitant]
     Active Substance: RANITIDINE HYDROCHLORIDE
     Dosage: 150 MG, 1X/DAY
     Route: 048
     Dates: start: 20151015
  9. ZANTAC [Concomitant]
     Active Substance: RANITIDINE HYDROCHLORIDE
     Dosage: 150 MG, 1X/DAY
     Route: 048
     Dates: start: 20151105
  10. BENADRYL [Concomitant]
     Active Substance: DIPHENHYDRAMINE HYDROCHLORIDE
     Dosage: 50 MG, 1X/DAY
     Route: 048
     Dates: start: 20150723
  11. ARISTOCORT A [Concomitant]
     Dosage: UNK, 3X/DAY, (0.5%, 1 APPLICATION, APPLY TO AFFECTED SKIN)
     Route: 061
     Dates: end: 20130319
  12. LYRICA [Suspect]
     Active Substance: PREGABALIN
     Dosage: 100 MG, 3X/DAY
     Route: 048
     Dates: end: 20140724
  13. LEVAQUIN [Concomitant]
     Active Substance: LEVOFLOXACIN
     Dosage: 500 MG, DAILY, (IF TEMPERATURE IS MORE ONE HUNDRED)
     Route: 048
     Dates: end: 20150702
  14. DECADRON [Concomitant]
     Active Substance: DEXAMETHASONE
     Dosage: 8 MG, 1X/DAY
     Route: 048
     Dates: start: 20141015
  15. DECADRON [Concomitant]
     Active Substance: DEXAMETHASONE
     Dosage: 8 MG, 1X/DAY
     Route: 048
     Dates: end: 20141126
  16. ZANTAC [Concomitant]
     Active Substance: RANITIDINE HYDROCHLORIDE
     Dosage: 150 MG, 1X/DAY
     Route: 048
     Dates: start: 20150924
  17. BENADRYL [Concomitant]
     Active Substance: DIPHENHYDRAMINE HYDROCHLORIDE
     Dosage: 50 MG, 1X/DAY
     Route: 048
     Dates: start: 20150813
  18. BENADRYL [Concomitant]
     Active Substance: DIPHENHYDRAMINE HYDROCHLORIDE
     Dosage: 50 MG, 1X/DAY, (HALF AN HOUR BEFORE CHEMO)
     Route: 048
     Dates: start: 20150604
  19. LYRICA [Suspect]
     Active Substance: PREGABALIN
     Dosage: 100 MG, 3X/DAY
     Route: 048
     Dates: start: 20160229
  20. OMEPRAZOLE. [Concomitant]
     Active Substance: OMEPRAZOLE
     Dosage: 40 MG, DAILY
     Route: 048
     Dates: start: 20141007
  21. PERCOCET [Concomitant]
     Active Substance: ACETAMINOPHEN\OXYCODONE HYDROCHLORIDE
     Indication: PAIN
     Dosage: 1 DF, AS NEEDED, 325MG, TWICE A DAY)
     Route: 048
     Dates: start: 20150123
  22. PERCOCET [Concomitant]
     Active Substance: ACETAMINOPHEN\OXYCODONE HYDROCHLORIDE
     Dosage: 1 DF, AS NEEDED, (OXYCODONE: 7.5MG,ACETAMINOPHEN: 325MG, TWICE A DAY)
     Route: 048
     Dates: start: 20150217
  23. EMLA [Concomitant]
     Active Substance: LIDOCAINE\PRILOCAINE
     Dosage: UNK, (2.5-2.5%;ON DAYS OF CHEMOTHERAPY)
     Route: 061
     Dates: start: 20150605
  24. DECADRON [Concomitant]
     Active Substance: DEXAMETHASONE
     Dosage: 8 MG, 1X/DAY
     Route: 048
     Dates: end: 20141105
  25. ZANTAC [Concomitant]
     Active Substance: RANITIDINE HYDROCHLORIDE
     Dosage: 150 MG, 1X/DAY
     Route: 048
     Dates: start: 20150723
  26. ZANTAC [Concomitant]
     Active Substance: RANITIDINE HYDROCHLORIDE
     Dosage: 150 MG, 1X/DAY, (DAILY AND HALF AN HOUR BEFORE CHEMO)
     Route: 048
     Dates: start: 20150604
  27. BENADRYL [Concomitant]
     Active Substance: DIPHENHYDRAMINE HYDROCHLORIDE
     Dosage: 50 MG, 1X/DAY
     Route: 048
     Dates: start: 20150924
  28. BENADRYL [Concomitant]
     Active Substance: DIPHENHYDRAMINE HYDROCHLORIDE
     Dosage: 50 MG, 1X/DAY
     Route: 048
     Dates: start: 20151015
  29. BENADRYL [Concomitant]
     Active Substance: DIPHENHYDRAMINE HYDROCHLORIDE
     Dosage: 50 MG, 1X/DAY
     Route: 048
     Dates: start: 20151105
  30. FEMARA [Concomitant]
     Active Substance: LETROZOLE
     Dosage: 2.5 MG, 1X/DAY
     Route: 048
     Dates: end: 20130625
  31. BENTYL [Concomitant]
     Active Substance: DICYCLOMINE HYDROCHLORIDE
     Indication: ABDOMINAL PAIN
     Dosage: 20 MG, 4X/DAY
     Route: 048
     Dates: end: 20141023
  32. ZITHROMAX [Concomitant]
     Active Substance: AZITHROMYCIN DIHYDRATE
     Dosage: 250 MG, DAILY, (TAKE 2 TABS ON FIRST DAY)
     Route: 048
     Dates: start: 20150115
  33. ZITHROMAX [Suspect]
     Active Substance: AZITHROMYCIN DIHYDRATE
     Dosage: 250 MG, UNK
  34. ZOFRAN [Concomitant]
     Active Substance: ONDANSETRON HYDROCHLORIDE
     Indication: NAUSEA
     Dosage: 8 MG, AS NEEDED, (EVERY 6 HOURS)
     Route: 048
     Dates: start: 20160121
  35. XELODA [Concomitant]
     Active Substance: CAPECITABINE
     Dosage: 1500 MG, CYCLIC, (TWICE A DAY FOR 2 WEEKS AND 1 WEEK OFF)
     Route: 048
     Dates: end: 20150430
  36. LYRICA [Suspect]
     Active Substance: PREGABALIN
     Indication: BREAST CANCER
     Dosage: 100 MG, 3X/DAY
     Route: 048
     Dates: start: 20151203
  37. PERCOCET [Concomitant]
     Active Substance: ACETAMINOPHEN\OXYCODONE HYDROCHLORIDE
     Dosage: 1 DF, AS NEEDED, (OXYCODONE: 7.5MG,ACETAMINOPHEN: 325MG, TWICE A DAY)
     Route: 048
     Dates: end: 20141204
  38. PERCOCET [Concomitant]
     Active Substance: ACETAMINOPHEN\OXYCODONE HYDROCHLORIDE
     Dosage: 1 DF, AS NEEDED, (OXYCODONE: 7.5MG,ACETAMINOPHEN: 325MG, TWICE A DAY)
     Route: 048
     Dates: end: 20141231
  39. VALTRAX [Concomitant]
     Dosage: 1 G, 3X/DAY
     Dates: end: 20140911
  40. NEURONTIN [Suspect]
     Active Substance: GABAPENTIN
     Indication: NEUROPATHY PERIPHERAL
     Dosage: 400 MG, 1X/DAY
     Route: 048
     Dates: end: 20130625
  41. COMPAZINE [Concomitant]
     Active Substance: PROCHLORPERAZINE MALEATE
     Dosage: 10 MG, AS NEEDED, (EVERY 6 HRS)
     Route: 048
     Dates: end: 20141007
  42. ZANTAC [Concomitant]
     Active Substance: RANITIDINE HYDROCHLORIDE
     Dosage: 150 MG, 1X/DAY
     Route: 048
     Dates: start: 20150702
  43. BENADRYL [Concomitant]
     Active Substance: DIPHENHYDRAMINE HYDROCHLORIDE
     Dosage: 50 MG, 1X/DAY
     Route: 048
     Dates: start: 20150702
  44. BENADRYL [Concomitant]
     Active Substance: DIPHENHYDRAMINE HYDROCHLORIDE
     Dosage: 50 MG, 1X/DAY
     Route: 048
     Dates: start: 20150903
  45. FEMARA [Concomitant]
     Active Substance: LETROZOLE
     Dosage: 2.5 MG, 1X/DAY
     Route: 048
     Dates: end: 20130416
  46. BACTRIM DS [Concomitant]
     Active Substance: SULFAMETHOXAZOLE\TRIMETHOPRIM
     Dosage: 1 DF, 2X/DAY, (SULFAMETHOXAZOLE-800;TRIMETHOPRIM-160MG)
     Route: 048
     Dates: end: 20150824
  47. LYRICA [Suspect]
     Active Substance: PREGABALIN
     Dosage: 100 MG, 3X/DAY
     Route: 048
     Dates: end: 20150108
  48. LYRICA [Suspect]
     Active Substance: PREGABALIN
     Dosage: 100 MG, 3X/DAY
     Route: 048
     Dates: end: 20150625
  49. LIPITOR [Suspect]
     Active Substance: ATORVASTATIN CALCIUM
     Dosage: 20 MG, 1X/DAY
     Route: 048
     Dates: start: 20120711
  50. COMPAZINE [Concomitant]
     Active Substance: PROCHLORPERAZINE MALEATE
     Dosage: 10 MG, AS NEEDED, (EVERY 6 HRS)
     Route: 048
     Dates: end: 20141202
  51. DECADRON [Concomitant]
     Active Substance: DEXAMETHASONE
     Dosage: 8 MG, 2X/DAY, (START DAY BEFORE CHEMO)
     Route: 048
     Dates: end: 20141007
  52. DECADRON [Concomitant]
     Active Substance: DEXAMETHASONE
     Dosage: 8 MG, 1X/DAY
     Route: 048
     Dates: end: 20141223
  53. DECADRON [Concomitant]
     Active Substance: DEXAMETHASONE
     Dosage: 8 MG, 1X/DAY
     Route: 048
     Dates: end: 20150204
  54. ZANTAC [Concomitant]
     Active Substance: RANITIDINE HYDROCHLORIDE
     Dosage: 150 MG, 1X/DAY
     Route: 048
     Dates: start: 20150903
  55. BENADRYL [Concomitant]
     Active Substance: DIPHENHYDRAMINE HYDROCHLORIDE
     Dosage: 50 MG, 1X/DAY
     Route: 048
     Dates: start: 20150611
  56. COMPAZINE [Concomitant]
     Active Substance: PROCHLORPERAZINE MALEATE
     Dosage: 10 MG, AS NEEDED, (EVERY 6 HRS)
     Route: 048
     Dates: end: 20150416
  57. LEVAQUIN [Concomitant]
     Active Substance: LEVOFLOXACIN
     Dosage: 500 MG, DAILY
     Route: 048
     Dates: end: 20151022
  58. DECADRON [Concomitant]
     Active Substance: DEXAMETHASONE
     Dosage: 8 MG, 1X/DAY
     Route: 048
     Dates: start: 20150113

REACTIONS (1)
  - Breast cancer [Unknown]
